FAERS Safety Report 16663506 (Version 1)
Quarter: 2019Q3

REPORT INFORMATION
  Report Type: Report from Study
  Country: US (occurrence: US)
  Receive Date: 20190802
  Receipt Date: 20190802
  Transmission Date: 20191004
  Serious: No
  Sender: FDA-Public Use
  Company Number: US-EXELIXIS-CABO-19021246

PATIENT
  Sex: Male

DRUGS (4)
  1. LENVIMA [Suspect]
     Active Substance: LENVATINIB
     Indication: RENAL CANCER
     Dosage: UNK
  2. CABOMETYX [Suspect]
     Active Substance: CABOZANTINIB S-MALATE
     Indication: RENAL CANCER
     Dosage: 60 MG, QD (WITHOUT FOOD)
     Dates: start: 20190426, end: 20190527
  3. CABOMETYX [Suspect]
     Active Substance: CABOZANTINIB S-MALATE
     Dosage: 60 MG, FOR 5 DAYS, THEN OFF FOR 2 DAYS(PM WITHOUT FOOD)
     Dates: start: 20190603
  4. PEPTO-BISMOL [Suspect]
     Active Substance: BISMUTH SUBSALICYLATE
     Indication: DIARRHOEA
     Dosage: UNK

REACTIONS (9)
  - Palmar-plantar erythrodysaesthesia syndrome [Recovering/Resolving]
  - Weight increased [Recovering/Resolving]
  - Diarrhoea [Recovering/Resolving]
  - Stomatitis [Recovering/Resolving]
  - Abdominal discomfort [Recovering/Resolving]
  - Hair colour changes [Recovering/Resolving]
  - Faeces discoloured [Recovering/Resolving]
  - Blood pressure increased [Recovered/Resolved]
  - Product dose omission [Unknown]

NARRATIVE: CASE EVENT DATE: 2019
